FAERS Safety Report 23514767 (Version 1)
Quarter: 2024Q1

REPORT INFORMATION
  Report Type: Report from Study
  Country: US (occurrence: US)
  Receive Date: 20240212
  Receipt Date: 20240212
  Transmission Date: 20240410
  Serious: Yes (Hospitalization)
  Sender: FDA-Public Use
  Company Number: US-BAUSCH-BL-2024-002133

PATIENT
  Age: 45 Year
  Sex: Male

DRUGS (1)
  1. XIFAXAN [Suspect]
     Active Substance: RIFAXIMIN
     Indication: Hepatic encephalopathy
     Dosage: 15 MONTHS
     Route: 048

REACTIONS (1)
  - Paracentesis [Unknown]

NARRATIVE: CASE EVENT DATE: 20240205
